FAERS Safety Report 11931454 (Version 1)
Quarter: 2016Q1

REPORT INFORMATION
  Report Type: Spontaneous
  Country: CA (occurrence: CA)
  Receive Date: 20160120
  Receipt Date: 20160120
  Transmission Date: 20160526
  Serious: Yes (Hospitalization, Other)
  Sender: FDA-Public Use
  Company Number: CA-TEVA-624148USA

PATIENT
  Age: 13 Year
  Sex: Male
  Weight: 58.6 kg

DRUGS (7)
  1. CARBOPLATIN. [Suspect]
     Active Substance: CARBOPLATIN
     Indication: CNS GERMINOMA
     Dosage: 930MG IN 310ML D5W IV OVER 1 HR FOR 1 DOSE; NON-TEVA PRODUCT
     Route: 042
     Dates: start: 20151125, end: 20151125
  2. TEVA-ETOPOSIDE [Suspect]
     Active Substance: ETOPOSIDE
     Dosage: HAD REACTION DURING 1ST DOSE, AFTER PRE-TREATMENT. INFUSION WAS
     Route: 042
     Dates: start: 20151221, end: 20151223
  3. DESMOPRESSIN [Concomitant]
     Active Substance: DESMOPRESSIN
     Indication: FLUID IMBALANCE
     Dosage: AS REQUIRED 0.1MG PO AS NEEDED TO BALANCE FLUIDS
     Route: 048
  4. TEVA-ETOPOSIDE [Suspect]
     Active Substance: ETOPOSIDE
     Indication: CNS GERMINOMA
     Route: 042
     Dates: start: 20151125, end: 20151127
  5. ONDANSETRON [Concomitant]
     Active Substance: ONDANSETRON
     Indication: NAUSEA
     Dosage: 24 MILLIGRAM DAILY;
     Route: 048
  6. HYDROCORTISONE. [Concomitant]
     Active Substance: HYDROCORTISONE
     Dosage: 10 MILLIGRAM DAILY;
     Route: 048
  7. LEVOTHYROXINE. [Concomitant]
     Active Substance: LEVOTHYROXINE
     Dosage: .075 MILLIGRAM DAILY;
     Route: 048

REACTIONS (5)
  - Flushing [Recovered/Resolved]
  - Rash [Not Recovered/Not Resolved]
  - Anaphylactic reaction [Recovered/Resolved]
  - Flushing [Recovered/Resolved]
  - Oropharyngeal pain [Recovered/Resolved]

NARRATIVE: CASE EVENT DATE: 201511
